FAERS Safety Report 7683529 (Version 9)
Quarter: 2017Q1

REPORT INFORMATION
  Report Type: Report from Study
  Country: FR (occurrence: FR)
  Receive Date: 20101125
  Receipt Date: 20170210
  Transmission Date: 20170429
  Serious: Yes (Death, Life-Threatening, Hospitalization, Other)
  Sender: FDA-Public Use
  Company Number: FR-PFIZER INC-2010153713

PATIENT
  Age: 75 Year
  Sex: Male
  Weight: 67 kg

DRUGS (70)
  1. REMIFENTANIL [Concomitant]
     Active Substance: REMIFENTANIL
     Indication: SEDATION
     Dosage: MAX DOSE: 0.8 MG/H (CONTINUOUS)
     Route: 042
     Dates: start: 20101030, end: 20101114
  2. PROPOFOL. [Concomitant]
     Active Substance: PROPOFOL
     Dosage: MAX DOSE: 8 ML/H (1 ML, CONTINUOUS)
     Route: 042
     Dates: start: 20101105, end: 20101114
  3. PLASMION [Concomitant]
     Active Substance: GELATIN
     Dosage: 250 ML, 3X/DAY
     Route: 042
     Dates: start: 20101108, end: 20101108
  4. VITAMIN B12 [Concomitant]
     Active Substance: CYANOCOBALAMIN
     Indication: SUPPLEMENTATION THERAPY
     Dosage: 1000 MG, 1X/DAY
     Route: 042
     Dates: start: 20101029, end: 20101029
  5. VOLUVEN [Concomitant]
     Active Substance: HYDROXYETHYL STARCH 130/0.4
     Dosage: 250 ML, 1X/DAY
     Route: 042
     Dates: start: 20101026, end: 20101026
  6. OMEPRAZOLE. [Concomitant]
     Active Substance: OMEPRAZOLE
     Indication: PROPHYLAXIS AGAINST GASTROINTESTINAL ULCER
     Dosage: 40 MG, 1X/DAY
     Route: 042
     Dates: start: 20101029, end: 20101030
  7. LASILIX [Concomitant]
     Active Substance: FUROSEMIDE
     Indication: OLIGURIA
     Dosage: 20 MG, 1X/DAY
     Route: 042
     Dates: start: 20101027, end: 20101028
  8. ARGATROBAN. [Suspect]
     Active Substance: ARGATROBAN
     Indication: HEPARIN-INDUCED THROMBOCYTOPENIA
     Dosage: 0.12 MCG/KG/MIN (0.5 ML/HR)
     Route: 042
     Dates: start: 20101105, end: 20101110
  9. HYDROCORTISONE HYDROGEN SUCCINATE [Concomitant]
     Active Substance: HYDROCORTISONE
     Indication: VASOPLEGIA SYNDROME
  10. PARACETAMOL [Concomitant]
     Active Substance: ACETAMINOPHEN
     Dosage: 1 G, 2X/DAY
     Route: 042
     Dates: start: 20101029, end: 20101029
  11. PARACETAMOL [Concomitant]
     Active Substance: ACETAMINOPHEN
     Dosage: 1 G, 1X/DAY
     Route: 042
     Dates: start: 20101102, end: 20101102
  12. EPHEDRINE. [Concomitant]
     Active Substance: EPHEDRINE
     Indication: HYPOTENSION
     Dosage: 15 MG, 1X/DAY
     Route: 042
     Dates: start: 20101031, end: 20101031
  13. VOLUVEN [Concomitant]
     Active Substance: HYDROXYETHYL STARCH 130/0.4
     Indication: HYPOVOLAEMIA
     Dosage: 250 ML, 2X/DAY
     Route: 042
     Dates: start: 20101026, end: 20101027
  14. ASPEGIC [Concomitant]
     Active Substance: ASPIRIN DL-LYSINE
     Indication: ANTICOAGULANT THERAPY
     Dosage: 100 MG, 1X/DAY
     Route: 048
     Dates: start: 20101031, end: 20101112
  15. ASPEGIC [Concomitant]
     Active Substance: ASPIRIN DL-LYSINE
     Indication: MYOCARDIAL ISCHAEMIA
  16. KETAMINE [Concomitant]
     Active Substance: KETAMINE
     Indication: ANALGESIC THERAPY
     Dosage: 8 MG, UNK
     Route: 042
     Dates: start: 20101031, end: 20101113
  17. PLASMION [Concomitant]
     Active Substance: GELATIN
     Indication: HYPOVOLAEMIA
     Dosage: 500 ML, 1X/DAY
     Route: 042
     Dates: start: 20101026, end: 20101026
  18. PLASMION [Concomitant]
     Active Substance: GELATIN
     Dosage: 250 ML, 2X/DAY
     Route: 042
     Dates: start: 20101028, end: 20101028
  19. LEDERFOLIN [Concomitant]
     Active Substance: LEUCOVORIN CALCIUM
     Indication: SUPPLEMENTATION THERAPY
     Dosage: 5 MG, 1X/DAY
     Dates: start: 20101029, end: 20101031
  20. NIMBEX [Concomitant]
     Active Substance: CISATRACURIUM BESYLATE
     Indication: SEDATION
     Dosage: 10 MG, 1X/DAY
     Route: 042
     Dates: start: 20101031, end: 20101031
  21. ALBUMIN HUMAN [Concomitant]
     Active Substance: ALBUMIN HUMAN
     Indication: HYPOALBUMINAEMIA
     Dosage: UNK
     Route: 042
     Dates: start: 20101026, end: 20101109
  22. VOLUVEN [Concomitant]
     Active Substance: HYDROXYETHYL STARCH 130/0.4
     Dosage: 250 ML, 1X/DAY
     Route: 042
     Dates: start: 20101103, end: 20101103
  23. OMEPRAZOLE. [Concomitant]
     Active Substance: OMEPRAZOLE
     Dosage: 40 MG, 1X/DAY
     Route: 042
     Dates: start: 20101109, end: 20101109
  24. HYDROCORTISONE HYDROGEN SUCCINATE [Concomitant]
     Active Substance: HYDROCORTISONE
     Indication: ADRENAL INSUFFICIENCY
  25. VANCOMYCIN [Concomitant]
     Active Substance: VANCOMYCIN
     Indication: INFECTION
     Dosage: .083 G, 1X/DAY
     Route: 042
     Dates: start: 20101107, end: 20101114
  26. GLUCOSE [Concomitant]
     Active Substance: DEXTROSE
     Indication: POSITIVE CARDIAC INOTROPIC EFFECT
     Dosage: UNK (10 ML, CONTINUOUS)
     Route: 042
     Dates: start: 20101025, end: 20101026
  27. PARACETAMOL [Concomitant]
     Active Substance: ACETAMINOPHEN
     Dosage: 1 G, 2X/DAY
     Route: 042
     Dates: start: 20101031, end: 20101031
  28. ACTRAPID [Concomitant]
     Active Substance: INSULIN HUMAN
     Dosage: 4 IU, 1X/DAY
     Route: 042
     Dates: start: 20101025, end: 20101025
  29. COROTROPE [Concomitant]
     Active Substance: MILRINONE
     Dosage: 2 MG, 1X/DAY
     Route: 042
     Dates: start: 20101101, end: 20101101
  30. COROTROPE [Concomitant]
     Active Substance: MILRINONE
     Dosage: 1 MG, 1X/DAY
     Route: 042
     Dates: start: 20101105, end: 20101107
  31. COROTROPE [Concomitant]
     Active Substance: MILRINONE
     Dosage: 1 MG, 1X/DAY
     Route: 042
     Dates: start: 20101106, end: 20101106
  32. CALCIUM FOLINATE [Concomitant]
     Active Substance: LEUCOVORIN CALCIUM
     Indication: NUTRITIONAL SUPPLEMENTATION
     Dosage: 5 MG, 1X/DAY
     Route: 042
     Dates: start: 20101107, end: 20101108
  33. AMIODARONE [Concomitant]
     Active Substance: AMIODARONE
     Indication: ARRHYTHMIA
     Dosage: UNK
     Route: 042
     Dates: start: 20101025, end: 20101114
  34. ARGATROBAN. [Suspect]
     Active Substance: ARGATROBAN
     Dosage: 0.12 MCG/KG/MIN (0.5 ML/HR)
     Route: 042
     Dates: start: 20101112, end: 20101113
  35. HYDROCORTISONE HYDROGEN SUCCINATE [Concomitant]
     Active Substance: HYDROCORTISONE
     Indication: INFLAMMATION
     Dosage: 8.33 MG, UNK
     Route: 042
     Dates: start: 20101109, end: 20101114
  36. NOREPINEPHRINE [Concomitant]
     Active Substance: NOREPINEPHRINE\NOREPINEPHRINE BITARTRATE
     Dosage: MAX DOSE: 2.4 MG/H (0.05 MG, CONTINUOUS)
     Route: 042
     Dates: start: 20101027, end: 20101029
  37. KETAMINE [Concomitant]
     Active Substance: KETAMINE
     Indication: SEDATION
  38. ESOMEPRAZOLE [Concomitant]
     Active Substance: ESOMEPRAZOLE
     Indication: PROPHYLAXIS AGAINST GASTROINTESTINAL ULCER
     Dosage: 40 MG, 1X/DAY
     Route: 042
     Dates: start: 20101031, end: 20101031
  39. ACLOTINE [Concomitant]
     Active Substance: ANTITHROMBIN III HUMAN
     Indication: ANTITHROMBIN III DEFICIENCY
     Dosage: 2500 IU, 1X/DAY
     Route: 042
     Dates: start: 20101104, end: 20101104
  40. MIDAZOLAM [Concomitant]
     Active Substance: MIDAZOLAM HYDROCHLORIDE
     Indication: SEDATION
     Dosage: 2 MG, 1X/DAY
     Route: 042
     Dates: start: 20101105, end: 20101105
  41. NOREPINEPHRINE [Concomitant]
     Active Substance: NOREPINEPHRINE\NOREPINEPHRINE BITARTRATE
     Indication: HAEMODYNAMIC INSTABILITY
     Dosage: MAX DOSE: 7 MG/H (0.85 MG, CONTINUOUS)
     Route: 042
     Dates: start: 20101031, end: 20101114
  42. ADRENALINE [Concomitant]
     Active Substance: EPINEPHRINE
     Indication: HAEMODYNAMIC INSTABILITY
     Dosage: MAX DOSE: 1.66 MG/H (0.02 MG, CONTINUOUS)
     Route: 042
     Dates: start: 20101026, end: 20101107
  43. PARACETAMOL [Concomitant]
     Active Substance: ACETAMINOPHEN
     Indication: PAIN PROPHYLAXIS
     Dosage: 1 G, 3X/DAY
     Route: 042
     Dates: start: 20101026, end: 20101028
  44. ESOMEPRAZOLE [Concomitant]
     Active Substance: ESOMEPRAZOLE
     Dosage: 40 MG, 1X/DAY
     Route: 042
     Dates: start: 20101108, end: 20101108
  45. ACTRAPID [Concomitant]
     Active Substance: INSULIN HUMAN
     Dosage: 5 IU, 2X/DAY
     Route: 042
     Dates: start: 20101025, end: 20101026
  46. FUROSEMIDE. [Concomitant]
     Active Substance: FUROSEMIDE
     Indication: OLIGURIA
     Dosage: 20 MG, 2X/DAY
     Dates: start: 20101030, end: 20101101
  47. LEDERFOLIN [Concomitant]
     Active Substance: LEUCOVORIN CALCIUM
     Dosage: 5 MG, 1X/DAY
     Route: 042
     Dates: start: 20101109, end: 20101113
  48. VITAMIN K [Concomitant]
     Active Substance: PHYTONADIONE
     Indication: PARENTERAL NUTRITION
     Dosage: 5 MG, 1X/DAY
     Route: 042
     Dates: start: 20101030, end: 20101030
  49. CORDARONE [Concomitant]
     Active Substance: AMIODARONE HYDROCHLORIDE
     Indication: ARRHYTHMIA PROPHYLAXIS
     Dosage: MAX DOSE: 25 MG/H (6.25 MG, CONTINUOUS)
     Route: 042
     Dates: start: 20101026, end: 20101114
  50. VOLUVEN [Concomitant]
     Active Substance: HYDROXYETHYL STARCH 130/0.4
     Dosage: 500 ML, 1X/DAY
     Route: 042
     Dates: start: 20101029, end: 20101029
  51. VOLUVEN [Concomitant]
     Active Substance: HYDROXYETHYL STARCH 130/0.4
     Dosage: 250 ML, 2X/DAY
     Route: 042
     Dates: start: 20101109, end: 20101109
  52. OMEPRAZOLE. [Concomitant]
     Active Substance: OMEPRAZOLE
     Dosage: 40 MG, 1X/DAY
     Route: 042
     Dates: start: 20101101, end: 20101107
  53. NOREPINEPHRINE [Concomitant]
     Active Substance: NOREPINEPHRINE\NOREPINEPHRINE BITARTRATE
     Dosage: UNK (0.05 MG, CONTINUOUS)
     Route: 042
     Dates: start: 20101026, end: 20101027
  54. PLASMION [Concomitant]
     Active Substance: GELATIN
     Dosage: 500 ML, 1X/DAY
     Route: 042
     Dates: start: 20101031, end: 20101031
  55. PLASMION [Concomitant]
     Active Substance: GELATIN
     Dosage: 250 ML, 2X/DAY
     Route: 042
     Dates: start: 20101105, end: 20101105
  56. PLASMION [Concomitant]
     Active Substance: GELATIN
     Dosage: 250 ML, 2X/DAY
     Route: 042
     Dates: start: 20101107, end: 20101107
  57. PARACETAMOL [Concomitant]
     Active Substance: ACETAMINOPHEN
     Dosage: 1 G, 3X/DAY
     Route: 042
     Dates: start: 20101030, end: 20101030
  58. PARACETAMOL [Concomitant]
     Active Substance: ACETAMINOPHEN
     Dosage: 1 G, 4X/DAY
     Route: 042
     Dates: start: 20101101, end: 20101101
  59. ACTRAPID [Concomitant]
     Active Substance: INSULIN HUMAN
     Indication: HYPERGLYCAEMIA
     Dosage: MAX DOSE: 8 UI/H (2 IU, CONTINUOUS)
     Route: 042
     Dates: start: 20101025, end: 20101026
  60. KAYEXALATE [Concomitant]
     Active Substance: SODIUM POLYSTYRENE SULFONATE
     Indication: HYPERKALAEMIA
     Dosage: 3 G, 1X/DAY
     Route: 048
     Dates: start: 20101027, end: 20101027
  61. COROTROPE [Concomitant]
     Active Substance: MILRINONE
     Indication: HAEMODYNAMIC INSTABILITY
     Dosage: 1 MG, 1X/DAY
     Route: 042
     Dates: start: 20101028, end: 20101029
  62. LEDERFOLIN [Concomitant]
     Active Substance: LEUCOVORIN CALCIUM
     Dosage: 5 MG, 1X/DAY
     Route: 042
     Dates: start: 20101105, end: 20101106
  63. HEPARIN SODIUM. [Concomitant]
     Active Substance: HEPARIN SODIUM
     Indication: EXTRACORPOREAL CIRCULATION
     Dosage: 30000 IU, 1X/DAY
     Route: 042
     Dates: start: 20101025, end: 20101025
  64. PROPOFOL. [Concomitant]
     Active Substance: PROPOFOL
     Indication: SEDATION
     Dosage: UNK (4 ML, CONTINUOUS)
     Route: 042
     Dates: start: 20101026, end: 20101029
  65. PROPOFOL. [Concomitant]
     Active Substance: PROPOFOL
     Dosage: MAX DOSE: 6 ML/H (4 ML, CONTINUOUS)
     Route: 042
     Dates: start: 20101031, end: 20101101
  66. CLAVENTIN [Concomitant]
     Active Substance: CLAVULANATE POTASSIUM\TICARCILLIN DISODIUM
     Indication: INFECTION
     Dosage: 3 G, 2X/DAY
     Route: 042
     Dates: start: 20101103, end: 20101110
  67. VANCOMYCIN [Concomitant]
     Active Substance: VANCOMYCIN
     Dosage: 1 G, 1X/DAY
     Dates: start: 20101105, end: 20101105
  68. INSULIN PORCINE [Concomitant]
     Active Substance: INSULIN DEFALAN (PORCINE)
     Indication: POSITIVE CARDIAC INOTROPIC EFFECT
     Dosage: 300 IU, CONTINUOUS
     Route: 042
     Dates: start: 20101025, end: 20101026
  69. VOLUVEN [Concomitant]
     Active Substance: HYDROXYETHYL STARCH 130/0.4
     Dosage: 250 ML, 2X/DAY
     Route: 042
     Dates: start: 20101102, end: 20101102
  70. INEXIUM [Concomitant]
     Active Substance: ESOMEPRAZOLE
     Indication: GASTRIC ULCER
     Dosage: 40 MG, 1X/DAY
     Route: 042
     Dates: start: 20101025, end: 20101028

REACTIONS (3)
  - Rectal haemorrhage [Not Recovered/Not Resolved]
  - Haematemesis [Recovered/Resolved with Sequelae]
  - Multiple organ dysfunction syndrome [Fatal]

NARRATIVE: CASE EVENT DATE: 20101110
